FAERS Safety Report 10349890 (Version 1)
Quarter: 2014Q3

REPORT INFORMATION
  Report Type: Spontaneous
  Country: CO (occurrence: CO)
  Receive Date: 20140730
  Receipt Date: 20140730
  Transmission Date: 20150326
  Serious: Yes (Death, Hospitalization, Other)
  Sender: FDA-Public Use
  Company Number: CO-JNJFOC-20140719636

PATIENT
  Age: 66 Year
  Sex: Female
  Weight: 60 kg

DRUGS (1)
  1. REMICADE [Suspect]
     Active Substance: INFLIXIMAB
     Indication: RHEUMATOID ARTHRITIS
     Route: 042
     Dates: start: 20130824, end: 20140129

REACTIONS (2)
  - Intestinal obstruction [Fatal]
  - Peritonitis [Fatal]

NARRATIVE: CASE EVENT DATE: 20140526
